FAERS Safety Report 22769132 (Version 2)
Quarter: 2023Q4

REPORT INFORMATION
  Report Type: Spontaneous
  Country: BR (occurrence: BR)
  Receive Date: 20230731
  Receipt Date: 20231113
  Transmission Date: 20240110
  Serious: Yes (Other)
  Sender: FDA-Public Use
  Company Number: BR-BoehringerIngelheim-2023-BI-252473

PATIENT
  Age: 72 Year
  Sex: Female
  Weight: 65 kg

DRUGS (1)
  1. PRADAXA [Suspect]
     Active Substance: DABIGATRAN ETEXILATE MESYLATE
     Indication: Thrombosis
     Dosage: 2 CAPSULES A DAY. PATIENT INFORMS THAT HE DOES AN 8-HOUR INTERVAL BETWEEN CAPSULES ADMINISTRATION.
     Route: 048
     Dates: start: 2023

REACTIONS (2)
  - Epilepsy [Recovered/Resolved]
  - Menopausal symptoms [Unknown]
